FAERS Safety Report 13927372 (Version 3)
Quarter: 2018Q4

REPORT INFORMATION
  Report Type: Report from Study
  Country: JP (occurrence: JP)
  Receive Date: 20170901
  Receipt Date: 20181130
  Transmission Date: 20190204
  Serious: Yes (Death, Life-Threatening, Hospitalization, Other)
  Sender: FDA-Public Use
  Company Number: JP-BRISTOL-MYERS SQUIBB COMPANY-BMS-2015-034888

PATIENT
  Age: 64 Year
  Sex: Male

DRUGS (2)
  1. NIVOLUMAB [Suspect]
     Active Substance: NIVOLUMAB
     Indication: MALIGNANT MELANOMA
     Dosage: 2 MG/KG (120 MG), Q3WK
     Route: 041
     Dates: start: 20150401, end: 20150422
  2. OXYCONTIN [Suspect]
     Active Substance: OXYCODONE HYDROCHLORIDE
     Indication: PRODUCT USED FOR UNKNOWN INDICATION
     Dosage: 20 MG, UNK
     Route: 048
     Dates: end: 20150602

REACTIONS (10)
  - C-reactive protein increased [Not Recovered/Not Resolved]
  - Duodenal perforation [Not Recovered/Not Resolved]
  - Red blood cell count decreased [Not Recovered/Not Resolved]
  - Hypoalbuminaemia [Not Recovered/Not Resolved]
  - Blood cholinesterase decreased [Not Recovered/Not Resolved]
  - Bilirubin urine present [Not Recovered/Not Resolved]
  - Surgery [Unknown]
  - Malignant neoplasm progression [Fatal]
  - Nausea [Not Recovered/Not Resolved]
  - Urobilinogen urine increased [Not Recovered/Not Resolved]

NARRATIVE: CASE EVENT DATE: 20150403
